FAERS Safety Report 20589991 (Version 1)
Quarter: 2022Q1

REPORT INFORMATION
  Report Type: Spontaneous
  Country: CN (occurrence: CN)
  Receive Date: 20220314
  Receipt Date: 20220314
  Transmission Date: 20220423
  Serious: Yes (Hospitalization)
  Sender: FDA-Public Use
  Company Number: CN-GLAXOSMITHKLINE-CN2022APC045597

PATIENT
  Age: 75 Year
  Sex: Male
  Weight: 60 kg

DRUGS (4)
  1. LAMOTRIGINE [Suspect]
     Active Substance: LAMOTRIGINE
     Indication: Epilepsy
     Dosage: 50 MG, BID
     Route: 048
     Dates: start: 20220216, end: 20220308
  2. REDUCED GLUTATHIONE [Concomitant]
     Indication: Product used for unknown indication
     Dosage: UNK
  3. AMBROXOL [Concomitant]
     Active Substance: AMBROXOL
     Indication: Product used for unknown indication
     Dosage: UNK
  4. SIMVASTATIN [Concomitant]
     Active Substance: SIMVASTATIN
     Indication: Product used for unknown indication
     Dosage: UNK

REACTIONS (6)
  - Rash [Not Recovered/Not Resolved]
  - Erythema [Recovering/Resolving]
  - Skin exfoliation [Not Recovered/Not Resolved]
  - Macule [Not Recovered/Not Resolved]
  - Scratch [Not Recovered/Not Resolved]
  - Scab [Not Recovered/Not Resolved]

NARRATIVE: CASE EVENT DATE: 20220308
